FAERS Safety Report 12417852 (Version 2)
Quarter: 2016Q2

REPORT INFORMATION
  Report Type: Spontaneous
  Country: DE (occurrence: DE)
  Receive Date: 20160531
  Receipt Date: 20160603
  Transmission Date: 20160815
  Serious: Yes (Hospitalization, Other)
  Sender: FDA-Public Use
  Company Number: PHHY2016DE067230

PATIENT
  Age: 53 Year
  Sex: Female

DRUGS (11)
  1. CERTOPARIN SODIUM [Concomitant]
     Active Substance: CERTOPARIN SODIUM
     Indication: PRODUCT USED FOR UNKNOWN INDICATION
     Dosage: 3000 IU, QD
     Route: 058
  2. METRONIDAZOLE. [Concomitant]
     Active Substance: METRONIDAZOLE
     Indication: PRODUCT USED FOR UNKNOWN INDICATION
     Route: 065
  3. DICLOFENAC COLESTYRAMINE [Interacting]
     Active Substance: CHOLESTYRAMINE\DICLOFENAC
     Indication: BACK PAIN
  4. TARGIN [Concomitant]
     Active Substance: NALOXONE HYDROCHLORIDE\OXYCODONE HYDROCHLORIDE
     Indication: PAIN
     Dosage: 10 MG OXYCODONE AND 5 MG NALOXONE BID
     Route: 048
  5. GENTAMICIN. [Suspect]
     Active Substance: GENTAMICIN
     Indication: ESCHERICHIA INFECTION
     Dosage: 160 MG, QD
     Route: 042
  6. CEFTRIAXONE. [Concomitant]
     Active Substance: CEFTRIAXONE
     Indication: PRODUCT USED FOR UNKNOWN INDICATION
     Route: 065
  7. CLINDAMYCIN [Concomitant]
     Active Substance: CLINDAMYCIN\CLINDAMYCIN PHOSPHATE
     Indication: ESCHERICHIA INFECTION
     Dosage: 600 MG, TID
     Route: 042
  8. DICLOFENAC COLESTYRAMINE [Interacting]
     Active Substance: CHOLESTYRAMINE\DICLOFENAC
     Indication: MUSCULOSKELETAL PAIN
     Dosage: 75 MG, BID
     Route: 065
  9. PANTOPRAZOLE [Concomitant]
     Active Substance: PANTOPRAZOLE SODIUM
     Indication: PROPHYLAXIS
     Dosage: 40 MG, BID
     Route: 042
  10. TARGIN [Concomitant]
     Active Substance: NALOXONE HYDROCHLORIDE\OXYCODONE HYDROCHLORIDE
     Dosage: 20 MG OXYCODONE AND 10 MG NALOXONE BID
     Route: 048
  11. CERTOPARIN SODIUM [Concomitant]
     Active Substance: CERTOPARIN SODIUM
     Dosage: 5000 IU, TID
     Route: 058

REACTIONS (2)
  - Acute kidney injury [Recovered/Resolved]
  - Potentiating drug interaction [Unknown]
